FAERS Safety Report 5417160-6 (Version None)
Quarter: 2007Q3

REPORT INFORMATION
  Report Type: 
  Country: None (occurrence: None)
  Receive Date: 20070718
  Receipt Date: 20060628
  Transmission Date: 20080115
  Serious: Yes (Hospitalization, Other)
  Sender: FDA-Public Use
  Company Number: 2005134628

PATIENT
  Age: 45 Year
  Sex: Male
  Weight: 113.3993 kg

DRUGS (3)
  1. CELEBREX [Suspect]
     Indication: ARTHRITIS
     Dosage: 400 MG (200 MG, 2 IN 1 D)
  2. BEXTRA [Suspect]
     Indication: ILL-DEFINED DISORDER
  3. VIOXX [Suspect]
     Indication: ARTHRITIS

REACTIONS (2)
  - DEPRESSION [None]
  - EMBOLISM [None]
